FAERS Safety Report 4681004-0 (Version None)
Quarter: 2005Q2

REPORT INFORMATION
  Report Type: 
  Country: None (occurrence: None)
  Receive Date: 20050601
  Receipt Date: 20050601
  Transmission Date: 20051028
  Serious: Yes (Disabling)
  Sender: FDA-Public Use
  Company Number: None

PATIENT
  Age: 65 Year
  Sex: Male
  Weight: 97.0698 kg

DRUGS (4)
  1. VIAGRA [Suspect]
     Indication: SEXUAL DYSFUNCTION
     Dosage: 1/2 TABLET  3-4/MONTH  OPHTHALMIC
     Route: 047
  2. ZOCOR [Concomitant]
  3. TOPOCOL [Concomitant]
  4. ALPHAGAN [Concomitant]

REACTIONS (1)
  - BLINDNESS [None]
